FAERS Safety Report 7108824-7 (Version None)
Quarter: 2010Q4

REPORT INFORMATION
  Report Type: 
  Country: None (occurrence: None)
  Receive Date: 20101117
  Receipt Date: 20101110
  Transmission Date: 20110411
  Serious: Yes (Other)
  Sender: FDA-Public Use
  Company Number: GB-GILEAD-2010-0033492

PATIENT
  Age: 29 Year
  Sex: Female

DRUGS (3)
  1. TRUVADA [Suspect]
     Indication: HIV INFECTION
     Route: 048
     Dates: start: 20090331
  2. REYATAZ [Concomitant]
     Route: 048
     Dates: start: 20090331
  3. NORVIR [Concomitant]
     Route: 048
     Dates: start: 20090331

REACTIONS (3)
  - ABORTION SPONTANEOUS [None]
  - PSEUDOMONAS INFECTION [None]
  - SUTURE RELATED COMPLICATION [None]
